FAERS Safety Report 18480394 (Version 1)
Quarter: 2020Q4

REPORT INFORMATION
  Report Type: Report from Study
  Country: IT (occurrence: IT)
  Receive Date: 20201109
  Receipt Date: 20201109
  Transmission Date: 20210114
  Serious: Yes (Life-Threatening)
  Sender: FDA-Public Use
  Company Number: IT-TEVA-2020-IT-1845438

PATIENT
  Age: 76 Year
  Sex: Female

DRUGS (10)
  1. FOLINA [Concomitant]
  2. RAMIPRIL. [Suspect]
     Active Substance: RAMIPRIL
     Route: 048
  3. ENOXAPARINA ROVI [Concomitant]
     Active Substance: ENOXAPARIN SODIUM
  4. RIVOTRIL [Concomitant]
     Active Substance: CLONAZEPAM
  5. KEPPRA [Concomitant]
     Active Substance: LEVETIRACETAM
  6. HALDOL [Concomitant]
     Active Substance: HALOPERIDOL
  7. GABAPENTIN  MOLTENI [Concomitant]
     Active Substance: GABAPENTIN
  8. AKINETON [Concomitant]
     Active Substance: BIPERIDEN HYDROCHLORIDE
  9. VIMPAT [Concomitant]
     Active Substance: LACOSAMIDE
  10. KCL RETARD [Concomitant]
     Active Substance: POTASSIUM CHLORIDE

REACTIONS (1)
  - Angioedema [Not Recovered/Not Resolved]

NARRATIVE: CASE EVENT DATE: 20200829
